FAERS Safety Report 14302968 (Version 1)
Quarter: 2017Q4

REPORT INFORMATION
  Report Type: Spontaneous
  Country: US (occurrence: US)
  Receive Date: 20171219
  Receipt Date: 20171219
  Transmission Date: 20180321
  Serious: Yes (Hospitalization)
  Sender: FDA-Public Use
  Company Number: US-JUBILANT CADISTA PHARMACEUTICALS-2017JUB00432

PATIENT
  Age: 73 Year
  Sex: Female

DRUGS (3)
  1. ROSUVASTATIN CALCIUM. [Suspect]
     Active Substance: ROSUVASTATIN CALCIUM
     Indication: HYPERLIPIDAEMIA
     Dosage: 40 MG, 1X/DAY
     Route: 065
  2. PAZOPANIB [Suspect]
     Active Substance: PAZOPANIB
     Indication: CLEAR CELL RENAL CELL CARCINOMA
     Dosage: 600 MG, 1X/DAY
     Route: 065
  3. PAZOPANIB [Suspect]
     Active Substance: PAZOPANIB
     Indication: METASTATIC NEOPLASM
     Dosage: 400 MG, 1X/DAY
     Route: 065

REACTIONS (4)
  - Rhabdomyolysis [Recovered/Resolved]
  - Acute kidney injury [Recovered/Resolved]
  - Toxicity to various agents [Recovered/Resolved]
  - Drug interaction [Recovered/Resolved]
